FAERS Safety Report 5679820-1 (Version None)
Quarter: 2008Q1

REPORT INFORMATION
  Report Type: 
  Country: None (occurrence: None)
  Receive Date: 20080324
  Receipt Date: 20080318
  Transmission Date: 20080703
  Serious: Yes (Death)
  Sender: FDA-Public Use
  Company Number: 2008SP005471

PATIENT
  Age: 41 Year
  Sex: Male

DRUGS (1)
  1. TEMODAR [Suspect]
     Indication: GLIOMA
     Dosage: PO
     Route: 048

REACTIONS (1)
  - DEATH [None]
